FAERS Safety Report 7748979-4 (Version None)
Quarter: 2011Q3

REPORT INFORMATION
  Report Type: 
  Country: None (occurrence: None)
  Receive Date: 20110909
  Receipt Date: 20110825
  Transmission Date: 20111222
  Serious: Yes (Other)
  Sender: FDA-Public Use
  Company Number: TPA2011A05279

PATIENT
  Age: 80 Year
  Sex: Male
  Weight: 117.9352 kg

DRUGS (3)
  1. UNKNOWN MEDICATION (ANTIHYPERTENSIVES) [Concomitant]
  2. UNKNOWN MEDICATION (OTHER CARDIAC PREPARATIONS) [Concomitant]
  3. ACTOS [Suspect]
     Indication: TYPE 2 DIABETES MELLITUS
     Dosage: 30 MG, 1 IN 1 D, PER ORAL
     Route: 048
     Dates: start: 20070825

REACTIONS (1)
  - BLADDER CANCER [None]
